FAERS Safety Report 13884927 (Version 1)
Quarter: 2017Q3

REPORT INFORMATION
  Report Type: Report from Study
  Country: CO (occurrence: CO)
  Receive Date: 20170821
  Receipt Date: 20170821
  Transmission Date: 20171127
  Serious: Yes (Hospitalization)
  Sender: FDA-Public Use
  Company Number: CO-ACTELION-A-CH2017-157883

PATIENT
  Age: 71 Year
  Sex: Female
  Weight: 82 kg

DRUGS (9)
  1. OPSUMIT [Suspect]
     Active Substance: MACITENTAN
     Indication: PULMONARY ARTERIAL HYPERTENSION
     Dosage: 10 MG, QD
     Route: 048
     Dates: start: 20170605, end: 20170805
  2. LOSARTAN. [Concomitant]
     Active Substance: LOSARTAN
     Indication: HYPERTENSION
     Dosage: 50 MG, BID
     Dates: start: 20150101
  3. METOPROLOL. [Concomitant]
     Active Substance: METOPROLOL
     Indication: HYPERTENSION
     Dosage: 50 MG, BID
     Dates: start: 20150101
  4. OMEPRAZOLE. [Concomitant]
     Active Substance: OMEPRAZOLE
     Indication: GASTRITIS
     Dosage: 20 MG, QD
     Dates: start: 20150101
  5. TRAZODONE [Concomitant]
     Active Substance: TRAZODONE HYDROCHLORIDE
     Indication: INSOMNIA
     Dosage: 50 MG, UNK
  6. ATORVASTATIN [Concomitant]
     Active Substance: ATORVASTATIN
     Indication: HYPERCHOLESTEROLAEMIA
     Dosage: 40 MG, QD
     Route: 048
     Dates: start: 20150101
  7. ACETYLSALICYLIC ACID [Concomitant]
     Active Substance: ASPIRIN
     Dosage: 100 MG, QD
     Dates: start: 20150101
  8. LEVOTHYROXINE. [Concomitant]
     Active Substance: LEVOTHYROXINE
     Indication: HYPOTHYROIDISM
     Dosage: 100 MCG, QD
     Route: 048
     Dates: start: 20151116
  9. FUROSEMIDE. [Concomitant]
     Active Substance: FUROSEMIDE
     Indication: FLUID RETENTION
     Dosage: 50 MG, QD
     Route: 048
     Dates: start: 20150101

REACTIONS (8)
  - Nausea [Recovered/Resolved]
  - Dyspnoea [Recovered/Resolved]
  - Epistaxis [Recovered/Resolved]
  - Oxygen saturation decreased [Recovered/Resolved]
  - International normalised ratio increased [Unknown]
  - Cyanosis central [Recovered/Resolved]
  - Platelet count decreased [Unknown]
  - Cyanosis [Recovered/Resolved]

NARRATIVE: CASE EVENT DATE: 20170708
